APPROVED DRUG PRODUCT: IRBESARTAN
Active Ingredient: IRBESARTAN
Strength: 150MG
Dosage Form/Route: TABLET;ORAL
Application: A203020 | Product #002 | TE Code: AB
Applicant: UNICHEM LABORATORIES LTD
Approved: Dec 7, 2015 | RLD: No | RS: No | Type: RX